FAERS Safety Report 24884977 (Version 1)
Quarter: 2025Q1

REPORT INFORMATION
  Report Type: Spontaneous
  Country: US (occurrence: US)
  Receive Date: 20250124
  Receipt Date: 20250124
  Transmission Date: 20250409
  Serious: Yes (Other)
  Sender: BRISTOL-MYERS SQUIBB COMPANY
  Company Number: US-BRISTOL-MYERS SQUIBB COMPANY-2025-011054

PATIENT
  Age: 55 Year
  Sex: Female
  Weight: 76.66 kg

DRUGS (5)
  1. REVLIMID [Suspect]
     Active Substance: LENALIDOMIDE
     Indication: Plasma cell myeloma
     Dosage: TAKE 1 CAPSULE BY MOUTH ONCE A DAY FOR 21 DAYS ON, 7 DAYS OFF
     Route: 048
     Dates: start: 20241213, end: 20250123
  2. ASPIRIN [Concomitant]
     Active Substance: ASPIRIN
  3. VALTREX [Concomitant]
     Active Substance: VALACYCLOVIR HYDROCHLORIDE
  4. MONTELUKAST SODIUM [Concomitant]
     Active Substance: MONTELUKAST SODIUM
  5. PROFILE [OMEPRAZOLE] [Concomitant]

REACTIONS (1)
  - Drug ineffective [Unknown]
